FAERS Safety Report 5143979-5 (Version None)
Quarter: 2006Q4

REPORT INFORMATION
  Report Type: 
  Country: None (occurrence: None)
  Receive Date: 20061102
  Receipt Date: 20061102
  Transmission Date: 20070319
  Serious: Yes (Death, Hospitalization)
  Sender: FDA-Public Use
  Company Number: None

PATIENT
  Sex: Female
  Weight: 86 kg

DRUGS (4)
  1. CYCLOPHOSPHAMIDE [Suspect]
     Dosage: 2352 MG
     Dates: end: 20060510
  2. DAUNORUBICIN HCL [Suspect]
     Dosage: 468 MG
     Dates: end: 20060512
  3. L-ASPARAGINASE [Suspect]
     Dosage: 11760 MG
     Dates: end: 20060514
  4. VINCRISTINE SULFATE [Suspect]
     Dosage: 4 MG
     Dates: end: 20060517

REACTIONS (5)
  - LOSS OF CONSCIOUSNESS [None]
  - MULTI-ORGAN FAILURE [None]
  - RENAL FAILURE [None]
  - RESPIRATORY FAILURE [None]
  - SEPSIS [None]
